FAERS Safety Report 22250613 (Version 1)
Quarter: 2023Q2

REPORT INFORMATION
  Report Type: Spontaneous
  Country: CA (occurrence: CA)
  Receive Date: 20230425
  Receipt Date: 20230425
  Transmission Date: 20230722
  Serious: Yes (Hospitalization, Other)
  Sender: FDA-Public Use
  Company Number: CA-PFIZER INC-PV202300071705

PATIENT
  Age: 63 Year
  Sex: Female

DRUGS (2)
  1. INLYTA [Suspect]
     Active Substance: AXITINIB
     Dosage: UNK
     Dates: start: 20220517
  2. KEYTRUDA [Concomitant]
     Active Substance: PEMBROLIZUMAB
     Dosage: UNK

REACTIONS (10)
  - Second primary malignancy [Recovering/Resolving]
  - Hepatic cancer [Recovering/Resolving]
  - Pancreatic carcinoma [Unknown]
  - Blood iron decreased [Unknown]
  - Gallbladder disorder [Unknown]
  - Diabetes mellitus [Unknown]
  - Weight decreased [Unknown]
  - Diarrhoea [Unknown]
  - Asthenia [Unknown]
  - Eye infection [Unknown]

NARRATIVE: CASE EVENT DATE: 20230418
